FAERS Safety Report 9919265 (Version 2)
Quarter: 2014Q1

REPORT INFORMATION
  Report Type: Spontaneous
  Country: US (occurrence: US)
  Receive Date: 20140224
  Receipt Date: 20140224
  Transmission Date: 20141002
  Serious: Yes (Hospitalization, Other)
  Sender: FDA-Public Use
  Company Number: US-BEH-2013039620

PATIENT
  Age: 26 Year
  Sex: Male
  Weight: 83 kg

DRUGS (10)
  1. PRIVIGEN [Suspect]
     Dosage: 300 ML/1.5 HOURS
     Route: 042
     Dates: start: 20131130
  2. PRIVIGEN [Suspect]
     Indication: CONGENITAL HYPOGAMMAGLOBULINAEMIA
     Dosage: 10 GM VIAL
     Route: 042
  3. SULFAMETHOXAZOLE-TMP DS [Suspect]
  4. CEFADROXIL [Concomitant]
  5. DIPHENHYDRAMINE [Concomitant]
  6. HEPARIN [Concomitant]
  7. SODIUM CHLORIDE [Concomitant]
  8. EPI-PEN [Concomitant]
  9. TRIAMCINOLONE [Concomitant]
  10. MULTIVITAMIN [Concomitant]

REACTIONS (2)
  - Cellulitis [Unknown]
  - Drug hypersensitivity [Unknown]
